FAERS Safety Report 5146123-3 (Version None)
Quarter: 2006Q4

REPORT INFORMATION
  Report Type: 
  Country: None (occurrence: None)
  Receive Date: 20061108
  Receipt Date: 20060830
  Transmission Date: 20070319
  Serious: Yes (Hospitalization)
  Sender: FDA-Public Use
  Company Number: 2006CG01432

PATIENT
  Age: 76 Year
  Sex: Female

DRUGS (4)
  1. NEXIUM [Suspect]
     Route: 048
     Dates: end: 20060701
  2. OMEPRAZOLE [Suspect]
     Route: 048
     Dates: end: 20060701
  3. ROCEPHIN [Suspect]
     Route: 042
     Dates: start: 20060616, end: 20060704
  4. SOLIAN [Suspect]
     Route: 048
     Dates: end: 20060701

REACTIONS (3)
  - RHEUMATOID FACTOR POSITIVE [None]
  - VASCULAR PURPURA [None]
  - VASCULITIS NECROTISING [None]
